FAERS Safety Report 14375490 (Version 1)
Quarter: 2018Q1

REPORT INFORMATION
  Report Type: Spontaneous
  Country: US (occurrence: US)
  Receive Date: 20180110
  Receipt Date: 20180110
  Transmission Date: 20180509
  Serious: Yes (Other)
  Sender: FDA-Public Use
  Company Number: None

PATIENT

DRUGS (1)
  1. MAVYRET [Suspect]
     Active Substance: GLECAPREVIR\PIBRENTASVIR
     Indication: HEPATITIS C
     Route: 048
     Dates: start: 20180102, end: 20180105

REACTIONS (4)
  - Skin haemorrhage [None]
  - Pruritus [None]
  - Erythema [None]
  - Scab [None]

NARRATIVE: CASE EVENT DATE: 20180109
